FAERS Safety Report 5164777-2 (Version None)
Quarter: 2006Q4

REPORT INFORMATION
  Report Type: 
  Country: None (occurrence: None)
  Receive Date: 20061124
  Receipt Date: 20061107
  Transmission Date: 20070319
  Serious: Yes (Death)
  Sender: FDA-Public Use
  Company Number: 8020026

PATIENT
  Age: 47 Year
  Sex: Male

DRUGS (2)
  1. KEPPRA [Suspect]
     Dosage: 250 MG 3/D
     Dates: end: 20061001
  2. ZONEGRAN [Suspect]
     Dosage: 100 MG
     Dates: start: 20060101, end: 20061022

REACTIONS (3)
  - ABASIA [None]
  - MYOCARDIAL INFARCTION [None]
  - WEIGHT DECREASED [None]
